FAERS Safety Report 7350282-1 (Version None)
Quarter: 2011Q1

REPORT INFORMATION
  Report Type: 
  Country: None (occurrence: None)
  Receive Date: 20110314
  Receipt Date: 20110303
  Transmission Date: 20110831
  Serious: Yes (Life-Threatening, Hospitalization, Other)
  Sender: FDA-Public Use
  Company Number: US-ELI_LILLY_AND_COMPANY-US201103001644

PATIENT
  Sex: Female

DRUGS (3)
  1. CYMBALTA [Suspect]
     Indication: DEPRESSION
     Dosage: 120 MG, UNK
     Dates: start: 20090101
  2. MOBIC [Concomitant]
     Indication: PAIN
  3. LEXAPRO [Concomitant]

REACTIONS (4)
  - OSTEONECROSIS [None]
  - INFLUENZA LIKE ILLNESS [None]
  - PULMONARY EMBOLISM [None]
  - BLOOD SODIUM DECREASED [None]
